FAERS Safety Report 6225880-9 (Version None)
Quarter: 2009Q2

REPORT INFORMATION
  Report Type: 
  Country: None (occurrence: None)
  Receive Date: 20090612
  Receipt Date: 20090504
  Transmission Date: 20091009
  Serious: No
  Sender: FDA-Public Use
  Company Number: US-ABBOTT-09P-163-0571392-00

PATIENT
  Sex: Female
  Weight: 65.376 kg

DRUGS (6)
  1. HUMIRA [Suspect]
     Indication: ANKYLOSING SPONDYLITIS
     Route: 058
     Dates: start: 20090406, end: 20090428
  2. UNKNOWN ALLERGY INJECTIONS [Suspect]
     Indication: HYPERSENSITIVITY
     Dates: start: 20090401
  3. SINGULAIR [Concomitant]
     Indication: HYPERSENSITIVITY
  4. ZYRTEC [Concomitant]
     Indication: HYPERSENSITIVITY
  5. NASACORT [Concomitant]
     Indication: HYPERSENSITIVITY
  6. SYMBICORT [Concomitant]
     Indication: HYPERSENSITIVITY

REACTIONS (5)
  - INJECTION SITE ERYTHEMA [None]
  - INJECTION SITE HAEMATOMA [None]
  - INJECTION SITE IRRITATION [None]
  - INJECTION SITE SWELLING [None]
  - RASH GENERALISED [None]
